FAERS Safety Report 9440210 (Version 1)
Quarter: 2013Q3

REPORT INFORMATION
  Report Type: Spontaneous
  Country: JP (occurrence: JP)
  Receive Date: 20130805
  Receipt Date: 20130805
  Transmission Date: 20140515
  Serious: Yes (Other)
  Sender: FDA-Public Use
  Company Number: PHHY2013JP083128

PATIENT
  Sex: Male

DRUGS (1)
  1. DIOVAN [Suspect]
     Dosage: 80 MG, BID
     Route: 048

REACTIONS (3)
  - Aortic aneurysm [Recovered/Resolved]
  - Skin erosion [Recovered/Resolved]
  - Blister [Recovered/Resolved]
